FAERS Safety Report 24386890 (Version 1)
Quarter: 2024Q4

REPORT INFORMATION
  Report Type: Spontaneous
  Country: CA (occurrence: CA)
  Receive Date: 20241002
  Receipt Date: 20241002
  Transmission Date: 20250115
  Serious: Yes (Hospitalization, Other)
  Sender: ACCORD
  Company Number: None

PATIENT
  Age: 62 Year
  Sex: Female

DRUGS (12)
  1. CISPLATIN [Suspect]
     Active Substance: CISPLATIN
     Indication: Plasma cell myeloma refractory
     Route: 042
  2. CYCLOPHOSPHAMIDE [Suspect]
     Active Substance: CYCLOPHOSPHAMIDE
     Indication: Plasma cell myeloma refractory
  3. DOXORUBICIN [Suspect]
     Active Substance: DOXORUBICIN
     Indication: Plasma cell myeloma refractory
  4. CARFILZOMIB [Suspect]
     Active Substance: CARFILZOMIB
     Indication: Plasma cell myeloma
     Dosage: POWDER FOR SOLUTION INTRAVENOUS
  5. DEXAMETHASONE [Suspect]
     Active Substance: DEXAMETHASONE
     Indication: Plasma cell myeloma refractory
  6. ETOPOSIDE [Suspect]
     Active Substance: ETOPOSIDE
     Indication: Plasma cell myeloma refractory
  7. FILGRASTIM [Suspect]
     Active Substance: FILGRASTIM
     Indication: Plasma cell myeloma
  8. REVLIMID [Suspect]
     Active Substance: LENALIDOMIDE
     Indication: Plasma cell myeloma
  9. VELCADE [Suspect]
     Active Substance: BORTEZOMIB
     Indication: Plasma cell myeloma
  10. DEXPANTHENOL [Concomitant]
     Active Substance: DEXPANTHENOL
  11. POMALIDOMIDE [Concomitant]
     Active Substance: POMALIDOMIDE
  12. VENETOCLAX [Concomitant]
     Active Substance: VENETOCLAX

REACTIONS (19)
  - Aggression [Unknown]
  - Anaemia [Unknown]
  - Blood calcium increased [Unknown]
  - Blood disorder [Unknown]
  - Bone marrow disorder [Unknown]
  - Confusional state [Unknown]
  - Cytopenia [Unknown]
  - Disease progression [Unknown]
  - Fibrosis [Unknown]
  - Gastrointestinal disorder [Unknown]
  - Hepatic enzyme increased [Unknown]
  - Hepatic steatosis [Unknown]
  - Off label use [Unknown]
  - Osteolysis [Unknown]
  - Plasma cell myeloma recurrent [Unknown]
  - Plasma cells increased [Unknown]
  - Pyrexia [Unknown]
  - Renal failure [Unknown]
  - Sepsis [Unknown]
